FAERS Safety Report 25134340 (Version 1)
Quarter: 2025Q1

REPORT INFORMATION
  Report Type: Spontaneous
  Country: GB (occurrence: GB)
  Receive Date: 20250328
  Receipt Date: 20250328
  Transmission Date: 20250408
  Serious: Yes (Hospitalization, Other)
  Sender: RANBAXY
  Company Number: GB-SUN PHARMACEUTICAL INDUSTRIES LTD-2025RR-501206

PATIENT
  Age: 83 Year
  Sex: Male

DRUGS (2)
  1. ATORVASTATIN [Suspect]
     Active Substance: ATORVASTATIN
     Indication: Product used for unknown indication
     Route: 065
     Dates: start: 20231201, end: 20250301
  2. BECLOMETHASONE DIPROPIONATE [Concomitant]
     Active Substance: BECLOMETHASONE DIPROPIONATE
     Indication: Adverse drug reaction
     Route: 065
     Dates: start: 19760101

REACTIONS (3)
  - Diplopia [Recovering/Resolving]
  - Myasthenia gravis [Not Recovered/Not Resolved]
  - Ocular myasthenia [Not Recovered/Not Resolved]

NARRATIVE: CASE EVENT DATE: 20240501
